FAERS Safety Report 5701933-6 (Version None)
Quarter: 2008Q2

REPORT INFORMATION
  Report Type: 
  Country: None (occurrence: None)
  Receive Date: 20080411
  Receipt Date: 20080407
  Transmission Date: 20081010
  Serious: Yes (Death, Other)
  Sender: FDA-Public Use
  Company Number: PHBS2007BR15543

PATIENT
  Age: 89 Year
  Sex: Female
  Weight: 100 kg

DRUGS (6)
  1. EXELON [Suspect]
     Indication: DEMENTIA ALZHEIMER'S TYPE
     Dosage: 1 TABLET/DAY
     Route: 048
     Dates: start: 20070201
  2. EXELON [Suspect]
     Dosage: 3 MG/D
     Route: 048
  3. PENTOXIFYLLINE [Concomitant]
     Dosage: UNK, QD
     Route: 048
  4. GINKGO BILOBA [Concomitant]
     Dosage: UNK, QD
     Route: 048
  5. NOVALGINA [Concomitant]
     Indication: PYREXIA
     Dosage: UNK, BID
     Route: 048
  6. CLONIDINE HCL [Concomitant]
     Indication: HYPERTENSION
     Dosage: 0.25 TABLET/D
     Route: 048

REACTIONS (7)
  - ABNORMAL BEHAVIOUR [None]
  - AGGRESSION [None]
  - AGITATION [None]
  - ANXIETY [None]
  - DEATH [None]
  - EYE DISORDER [None]
  - HALLUCINATION [None]
